FAERS Safety Report 23211567 (Version 1)
Quarter: 2023Q4

REPORT INFORMATION
  Report Type: Spontaneous
  Country: US (occurrence: US)
  Receive Date: 20231121
  Receipt Date: 20231121
  Transmission Date: 20240110
  Serious: Yes (Death, Life-Threatening, Hospitalization, Other)
  Sender: FDA-Public Use
  Company Number: US-FreseniusKabi-FK202318241

PATIENT
  Age: 47 Year
  Sex: Male
  Weight: 84 kg

DRUGS (23)
  1. LEUCOVORIN [Suspect]
     Active Substance: LEUCOVORIN\LEUCOVORIN CALCIUM
     Indication: Colorectal cancer
     Dosage: GIVEN ON 18-JAN-2022, 01-FEB-2022, 15-FEB-2022, 28-FEB-2022, 14-MAR-2022, 28-MAR-2022, 11-APR-2022,
     Route: 042
     Dates: end: 20220613
  2. LEUCOVORIN [Suspect]
     Active Substance: LEUCOVORIN\LEUCOVORIN CALCIUM
     Route: 042
     Dates: start: 20220718
  3. OXALIPLATIN [Suspect]
     Active Substance: OXALIPLATIN
     Indication: Colorectal cancer
     Dosage: RECEIVED AS SINGLE DOSE ON 18-JAN-2022, 01-FEB-222, 15-FEB-2022, 28-FEB-2022, 14-MAR-222, 28-MAR-202
     Route: 041
     Dates: end: 20220613
  4. ETRUMADENANT [Suspect]
     Active Substance: ETRUMADENANT
     Indication: Colorectal cancer
     Dosage: 150 MG QD
     Route: 048
     Dates: end: 20220214
  5. ETRUMADENANT [Suspect]
     Active Substance: ETRUMADENANT
     Dosage: 150 MG QD,
     Route: 048
     Dates: start: 20220215, end: 20220616
  6. ETRUMADENANT [Suspect]
     Active Substance: ETRUMADENANT
     Dosage: SINGLE DOSE
     Route: 048
     Dates: start: 20220617, end: 20220617
  7. ZIMBERELIMAB [Suspect]
     Active Substance: ZIMBERELIMAB
     Indication: Colorectal cancer
     Dosage: SINGLE DOSE, DURATION: 4 MONTHS 27 DAYS, RECEIVED ON 18-JAN-2022 (400MG DOSE), 15-FEB-2022, 14-MAR-2
     Route: 041
     Dates: end: 20220613
  8. ZIMBERELIMAB [Suspect]
     Active Substance: ZIMBERELIMAB
     Dosage: SINGLE DOSE
     Route: 041
     Dates: start: 20220118, end: 20220118
  9. FLUOROURACIL [Suspect]
     Active Substance: FLUOROURACIL
     Indication: Colorectal cancer
     Dosage: 5040 MG, SINGLE DOSE RECEIVED ON 18-JAN-2022, 01-FEB-2022, 15-FEB-2022, 28-FEB-2022, 14-MAR-2022 , 2
     Route: 041
     Dates: end: 20220613
  10. FLUOROURACIL [Suspect]
     Active Substance: FLUOROURACIL
     Dosage: 4728 MG, SINGLE DOSE
     Route: 041
     Dates: start: 20220718, end: 20220718
  11. BEVACIZUMAB [Suspect]
     Active Substance: BEVACIZUMAB
     Indication: Colorectal cancer
     Dosage: 455 MG, SINGLE DOSE, RECEIVED ON 18-JAN-2022, 01-FEB-2022, 15-FEB-2022, 28-FEB-2022, 14-MAR-2022, 28
     Route: 041
     Dates: end: 20220613
  12. XARELTO [Concomitant]
     Active Substance: RIVAROXABAN
     Indication: Product used for unknown indication
     Dates: start: 20200701
  13. POTASSIUM CHLORIDE [Concomitant]
     Active Substance: POTASSIUM CHLORIDE
     Indication: Prophylaxis
     Dates: start: 20210701
  14. SODIUM CHLORIDE [Concomitant]
     Active Substance: SODIUM CHLORIDE
     Indication: Premedication
     Dates: start: 20220118
  15. DEXAMETHASONE [Concomitant]
     Active Substance: DEXAMETHASONE
     Indication: Prophylaxis
     Dosage: ONGOING
     Dates: start: 20220118
  16. DEXTROSE\SODIUM CHLORIDE [Concomitant]
     Active Substance: DEXTROSE\SODIUM CHLORIDE
     Indication: Premedication
     Dates: start: 20220118
  17. DIPHENHYDRAMINE [Concomitant]
     Active Substance: DIPHENHYDRAMINE
     Indication: Prophylaxis
     Dates: start: 20220215
  18. PARACETAMOL (ACETOMINOPHEN) [Concomitant]
     Indication: Product used for unknown indication
     Dates: start: 20220217
  19. IBUPROFEN [Concomitant]
     Active Substance: IBUPROFEN
     Indication: Product used for unknown indication
     Dates: start: 20220411
  20. PLATELETS [Concomitant]
     Active Substance: HUMAN PLATELET, ALLOGENIC
     Indication: Product used for unknown indication
     Dates: start: 20220624, end: 20220718
  21. HUMAN RED BLOOD CELL [Concomitant]
     Active Substance: HUMAN RED BLOOD CELL
     Indication: Product used for unknown indication
     Dates: start: 20220628, end: 20220628
  22. LIDOCAINE PATCH [Concomitant]
     Active Substance: LIDOCAINE
     Indication: Product used for unknown indication
     Dosage: PATCH
     Dates: start: 20220725, end: 20220727
  23. TORADOL [Concomitant]
     Active Substance: KETOROLAC TROMETHAMINE
     Indication: Product used for unknown indication
     Dates: start: 20220725, end: 20220727

REACTIONS (21)
  - Disease progression [Fatal]
  - Acute kidney injury [Recovered/Resolved with Sequelae]
  - Thrombocytopenia [Recovered/Resolved]
  - Thrombocytopenia [Recovering/Resolving]
  - Small intestinal obstruction [Recovered/Resolved]
  - Neutropenia [Unknown]
  - Gastrointestinal haemorrhage [Unknown]
  - Secondary immunodeficiency [Unknown]
  - Toxicity to various agents [Unknown]
  - Epistaxis [Unknown]
  - Haemoptysis [Unknown]
  - Nausea [Recovering/Resolving]
  - Abdominal pain [Recovering/Resolving]
  - Diarrhoea [Recovering/Resolving]
  - Vomiting [Recovering/Resolving]
  - Oedema peripheral [Unknown]
  - Contusion [Unknown]
  - Haematuria [Unknown]
  - Haematochezia [Unknown]
  - Gingival bleeding [Unknown]
  - Anaemia [Unknown]

NARRATIVE: CASE EVENT DATE: 20220114
